FAERS Safety Report 22516873 (Version 1)
Quarter: 2023Q2

REPORT INFORMATION
  Report Type: Spontaneous
  Country: CH (occurrence: CH)
  Receive Date: 20230603
  Receipt Date: 20230603
  Transmission Date: 20230721
  Serious: Yes (Hospitalization, Other)
  Sender: FDA-Public Use
  Company Number: CH-STRIDES ARCOLAB LIMITED-2023SP008904

PATIENT
  Age: 62 Year
  Sex: Male

DRUGS (3)
  1. DEXAMETHASONE [Suspect]
     Active Substance: DEXAMETHASONE
     Indication: Pulmonary fibrosis
     Dosage: 10 MILLIGRAM/DAY FOR 21 DAYS
     Route: 065
  2. PREDNISOLONE [Suspect]
     Active Substance: PREDNISOLONE
     Indication: Pulmonary fibrosis
     Dosage: 25 MILLIGRAM/DAY
     Route: 048
  3. MYCOPHENOLATE MOFETIL [Suspect]
     Active Substance: MYCOPHENOLATE MOFETIL
     Indication: Pulmonary fibrosis
     Dosage: 1500 MILLIGRAM/DAY
     Route: 065

REACTIONS (6)
  - Acute respiratory distress syndrome [Unknown]
  - Interstitial lung disease [Unknown]
  - Drug ineffective [Unknown]
  - Condition aggravated [Unknown]
  - COVID-19 [Unknown]
  - Off label use [Unknown]
